FAERS Safety Report 4584576-X (Version None)
Quarter: 2005Q1

REPORT INFORMATION
  Report Type: 
  Country: None (occurrence: None)
  Receive Date: 20050125
  Receipt Date: 20041012
  Transmission Date: 20050727
  Serious: No
  Sender: FDA-Public Use
  Company Number: US_981214724

PATIENT
  Age: 83 Year
  Sex: Female
  Weight: 51 kg

DRUGS (10)
  1. EVISTA [Suspect]
     Indication: OSTEOPOROSIS
     Dosage: 60 MG/DAY
     Dates: start: 19981001
  2. FORTEO [Suspect]
     Indication: OSTEOPOROSIS
     Dates: start: 20030501
  3. LANOXIN [Concomitant]
  4. ATENOLOL [Concomitant]
  5. PRINIVIL [Concomitant]
  6. POTASSIUM CHLORIDE [Concomitant]
  7. ASPIRIN [Concomitant]
  8. MULTI-VITAMIN [Concomitant]
  9. CALCIUM GLUCONATE [Concomitant]
  10. ACTONEL [Concomitant]

REACTIONS (9)
  - BLOOD CALCIUM INCREASED [None]
  - CHEST DISCOMFORT [None]
  - DRUG INEFFECTIVE [None]
  - DYSPHONIA [None]
  - HEART RATE INCREASED [None]
  - MUSCLE SPASMS [None]
  - MUSCULOSKELETAL STIFFNESS [None]
  - PAIN [None]
  - VISUAL ACUITY REDUCED [None]
